FAERS Safety Report 7362587-9 (Version None)
Quarter: 2011Q1

REPORT INFORMATION
  Report Type: 
  Country: None (occurrence: None)
  Receive Date: 20110320
  Receipt Date: 20110214
  Transmission Date: 20110831
  Serious: Yes (Hospitalization, Other)
  Sender: FDA-Public Use
  Company Number: US-BAYER-201042079NA

PATIENT
  Sex: Female
  Weight: 117.46 kg

DRUGS (4)
  1. YAZ [Suspect]
     Indication: POLYCYSTIC OVARIES
     Dosage: 1 TAB/DAY
     Dates: start: 20080115, end: 20081109
  2. PHENDIMETRAZINE FUMARATE [Concomitant]
     Indication: WEIGHT DECREASED
     Dosage: 35 MG, TID
     Dates: start: 20080911, end: 20081212
  3. YAZ [Suspect]
     Indication: CONTRACEPTION
     Dosage: 1 TAB/DAY
     Route: 048
     Dates: start: 20060719, end: 20070819
  4. CALCIUM PYRUVATE [Concomitant]
     Indication: WEIGHT DECREASED
     Dosage: UNK
     Dates: start: 20080911, end: 20081212

REACTIONS (4)
  - CHOLECYSTITIS CHRONIC [None]
  - PAIN [None]
  - CHOLECYSTECTOMY [None]
  - CHOLELITHIASIS [None]
